FAERS Safety Report 4363171-1 (Version None)
Quarter: 2004Q2

REPORT INFORMATION
  Report Type: 
  Country: None (occurrence: None)
  Receive Date: 20040524
  Receipt Date: 20030612
  Transmission Date: 20050107
  Serious: No
  Sender: FDA-Public Use
  Company Number: US-GLAXOSMITHKLINE-A0412075A

PATIENT
  Age: 10 Year
  Sex: Female

DRUGS (2)
  1. BACTROBAN [Suspect]
     Indication: PROPHYLAXIS
     Route: 045
     Dates: start: 20030606, end: 20030606
  2. AMOXICILLIN [Concomitant]

REACTIONS (4)
  - BURNING SENSATION [None]
  - CRYING [None]
  - MEDICATION ERROR [None]
  - PRURITUS [None]
